FAERS Safety Report 4956740-9 (Version None)
Quarter: 2006Q2

REPORT INFORMATION
  Report Type: 
  Country: None (occurrence: None)
  Receive Date: 20060329
  Receipt Date: 20060303
  Transmission Date: 20061013
  Serious: Yes (Death)
  Sender: FDA-Public Use
  Company Number: JP-ROCHE-439653

PATIENT
  Age: 86 Year
  Sex: Female

DRUGS (15)
  1. TAMIFLU [Suspect]
     Route: 048
     Dates: start: 20060227, end: 20060227
  2. TAMIFLU [Suspect]
     Route: 048
     Dates: start: 20060228, end: 20060301
  3. TAMIFLU [Suspect]
     Route: 048
     Dates: start: 20060302, end: 20060302
  4. NU-LOTAN [Suspect]
     Indication: HYPERTENSION
     Route: 048
     Dates: end: 20060302
  5. LASIX [Suspect]
     Indication: HYPERTENSION
     Route: 048
     Dates: end: 20060302
  6. BEPRICOR [Suspect]
     Indication: HYPERTENSION
     Route: 048
     Dates: end: 20060302
  7. INTEBAN [Suspect]
     Indication: PYREXIA
     Dosage: TAKEN AS NEEDED.  DOSE FORM REPORTED AS RECTAL SUPPOSITORY
     Route: 054
     Dates: start: 20060227, end: 20060303
  8. LOXONIN [Concomitant]
     Indication: PYREXIA
     Dosage: TAKEN AS NEEDED
     Route: 048
     Dates: start: 20060227, end: 20060302
  9. AMOBAN [Suspect]
     Indication: DRUG USE FOR UNKNOWN INDICATION
     Route: 048
     Dates: start: 20060301, end: 20060301
  10. CEFAMEZIN [Suspect]
     Indication: PNEUMONIA
     Route: 042
     Dates: start: 20060301, end: 20060302
  11. CLINDAMYCIN [Suspect]
     Indication: PNEUMONIA
     Route: 042
     Dates: start: 20060302, end: 20060303
  12. MEROPEN [Suspect]
     Indication: PNEUMONIA
     Route: 042
     Dates: start: 20060302, end: 20060303
  13. WARFARIN [Concomitant]
     Route: 048
     Dates: end: 20060302
  14. CALCIUM POLYSTYRENE SULFONATE [Concomitant]
     Route: 048
     Dates: end: 20060302
  15. IMMUNE GLOBULIN INTRAVENOUS (HUMAN) [Concomitant]
     Route: 042
     Dates: start: 20060302, end: 20060303

REACTIONS (6)
  - AGRANULOCYTOSIS [None]
  - DISSEMINATED INTRAVASCULAR COAGULATION [None]
  - LEUKOPENIA [None]
  - MULTI-ORGAN FAILURE [None]
  - PNEUMONIA [None]
  - SEPSIS [None]
